FAERS Safety Report 10379183 (Version 1)
Quarter: 2014Q3

REPORT INFORMATION
  Report Type: Report from Study
  Country: RO (occurrence: RO)
  Receive Date: 20140812
  Receipt Date: 20140812
  Transmission Date: 20150326
  Serious: Yes (Other)
  Sender: FDA-Public Use
  Company Number: RO-GLAXOSMITHKLINE-B1021346A

PATIENT
  Age: 56 Year
  Sex: Male
  Weight: 80 kg

DRUGS (5)
  1. ACETYLSALICYLIC ACID [Concomitant]
     Active Substance: ASPIRIN
     Indication: ACUTE MYOCARDIAL INFARCTION
     Dosage: 75MG PER DAY
     Route: 048
     Dates: start: 20130601
  2. CLOPIDOGREL [Concomitant]
     Active Substance: CLOPIDOGREL BISULFATE
     Indication: ACUTE MYOCARDIAL INFARCTION
     Dosage: 75MG PER DAY
     Route: 048
     Dates: start: 20130601
  3. ATORVASTATIN CALCIUM. [Concomitant]
     Active Substance: ATORVASTATIN CALCIUM
     Indication: DYSLIPIDAEMIA
     Dosage: 80MG PER DAY
     Route: 048
     Dates: start: 20130601
  4. OMACOR [Suspect]
     Active Substance: OMEGA-3-ACID ETHYL ESTERS
     Indication: ACUTE MYOCARDIAL INFARCTION
     Dosage: 1000MG PER DAY
     Route: 048
     Dates: start: 20130601
  5. PERINDOPRIL [Concomitant]
     Active Substance: PERINDOPRIL
     Indication: ACUTE MYOCARDIAL INFARCTION
     Dosage: 5MG PER DAY
     Route: 048
     Dates: start: 20130601

REACTIONS (1)
  - Cardiac failure congestive [Unknown]

NARRATIVE: CASE EVENT DATE: 20130717
